FAERS Safety Report 5388585-2 (Version None)
Quarter: 2007Q3

REPORT INFORMATION
  Report Type: 
  Country: None (occurrence: None)
  Receive Date: 20070716
  Receipt Date: 20070709
  Transmission Date: 20080115
  Serious: Yes (Hospitalization)
  Sender: FDA-Public Use
  Company Number: FR-ASTRAZENECA-2007CG01039

PATIENT
  Age: 28183 Day
  Sex: Female

DRUGS (7)
  1. NEXIUM [Suspect]
     Route: 048
     Dates: start: 20070511
  2. PERINDOPRIL ERBUMINE [Suspect]
     Route: 048
     Dates: start: 20070513, end: 20070521
  3. ATORVASTATIN CALCIUM [Suspect]
     Route: 048
     Dates: start: 20070515, end: 20070525
  4. PLAVIX [Suspect]
     Route: 048
     Dates: start: 20070511
  5. SECTRAL [Suspect]
     Route: 048
     Dates: start: 20070515, end: 20070525
  6. ADANCOR [Concomitant]
     Dates: start: 20070501
  7. LASIX [Concomitant]
     Dates: start: 20070501

REACTIONS (6)
  - CHEILITIS [None]
  - EOSINOPHILIA [None]
  - EYELID OEDEMA [None]
  - GENERALISED ERYTHEMA [None]
  - HYPERTHERMIA [None]
  - PRURITUS GENERALISED [None]
